FAERS Safety Report 17982879 (Version 1)
Quarter: 2020Q3

REPORT INFORMATION
  Report Type: Spontaneous
  Country: US (occurrence: US)
  Receive Date: 20200702
  Receipt Date: 20200702
  Transmission Date: 20201103
  Serious: Yes (Hospitalization)
  Sender: FDA-Public Use
  Company Number: None

PATIENT
  Age: 67 Year
  Sex: Male

DRUGS (21)
  1. ZORTRESS [Suspect]
     Active Substance: EVEROLIMUS
     Indication: LIVER TRANSPLANT
     Route: 048
  2. DOXYCYC MONO [Concomitant]
     Active Substance: DOXYCYCLINE
  3. PILOCARPINE. [Concomitant]
     Active Substance: PILOCARPINE
  4. TACROLIMUS. [Concomitant]
     Active Substance: TACROLIMUS
  5. LACTULOSE. [Concomitant]
     Active Substance: LACTULOSE
  6. METFORMIN [Concomitant]
     Active Substance: METFORMIN HYDROCHLORIDE
  7. ATROVASTATIN [Concomitant]
     Active Substance: ATORVASTATIN CALCIUM
  8. SERTRALINE [Concomitant]
     Active Substance: SERTRALINE HYDROCHLORIDE
  9. TRAMADOL HCL [Concomitant]
     Active Substance: TRAMADOL HYDROCHLORIDE
  10. CARVEDILOL. [Concomitant]
     Active Substance: CARVEDILOL
  11. IBUPROFEN. [Concomitant]
     Active Substance: IBUPROFEN
  12. ZOLIPDEM [Concomitant]
     Active Substance: ZOLPIDEM TARTRATE
  13. URSODIOL. [Concomitant]
     Active Substance: URSODIOL
  14. PREGABLIN [Concomitant]
     Active Substance: PREGABALIN
  15. AMLODIPINE [Concomitant]
     Active Substance: AMLODIPINE BESYLATE
  16. LIDOCAINE. [Concomitant]
     Active Substance: LIDOCAINE
  17. ORPHENADRINE [Concomitant]
     Active Substance: ORPHENADRINE
  18. PANTOPRAZOLE [Concomitant]
     Active Substance: PANTOPRAZOLE
  19. VITAMIN D [Concomitant]
     Active Substance: VITAMIN D NOS
  20. CYPROHEPTAD [Concomitant]
  21. NITROFUR MAC [Concomitant]
     Active Substance: NITROFURANTOIN

REACTIONS (1)
  - Throat cancer [None]

NARRATIVE: CASE EVENT DATE: 2019
